FAERS Safety Report 17165123 (Version 1)
Quarter: 2019Q4

REPORT INFORMATION
  Report Type: Report from Study
  Country: US (occurrence: US)
  Receive Date: 20191217
  Receipt Date: 20191217
  Transmission Date: 20200122
  Serious: Yes (Hospitalization)
  Sender: FDA-Public Use
  Company Number: US-BAYER-2019-199277

PATIENT
  Sex: Male
  Weight: 63.49 kg

DRUGS (2)
  1. STIVARGA [Suspect]
     Active Substance: REGORAFENIB
     Indication: COLON CANCER
     Dosage: 160 MG DAILY ON DAY 1 THROUGH 21 DAYS THEN 7 DAYS OFF.
     Route: 048
     Dates: start: 201909, end: 201909
  2. STIVARGA [Suspect]
     Active Substance: REGORAFENIB
     Indication: COLON CANCER
     Dosage: 40 MG DAILY FOR 21 DAYS THEN
     Dates: start: 2019

REACTIONS (3)
  - Fatigue [None]
  - Sepsis [None]
  - Nausea [None]
